FAERS Safety Report 9808805 (Version 1)
Quarter: 2014Q1

REPORT INFORMATION
  Report Type: Spontaneous
  Country: US (occurrence: US)
  Receive Date: 20140110
  Receipt Date: 20140110
  Transmission Date: 20141002
  Serious: No
  Sender: FDA-Public Use
  Company Number: US-GILEAD-2014-0091616

PATIENT
  Age: 62 Year
  Sex: Male

DRUGS (3)
  1. LETAIRIS [Suspect]
     Indication: PRODUCT USED FOR UNKNOWN INDICATION
     Dosage: 10 MG, QD
     Route: 048
     Dates: start: 20120516
  2. REMODULIN [Concomitant]
  3. REVATIO [Concomitant]

REACTIONS (2)
  - Dyspnoea [Unknown]
  - Oedema peripheral [Unknown]
